FAERS Safety Report 24889358 (Version 3)
Quarter: 2025Q1

REPORT INFORMATION
  Report Type: Spontaneous
  Country: CA (occurrence: CA)
  Receive Date: 20250127
  Receipt Date: 20250306
  Transmission Date: 20250408
  Serious: Yes (Other)
  Sender: PFIZER
  Company Number: CA-PFIZER INC-202500012937

PATIENT
  Age: 15 Year
  Sex: Male

DRUGS (2)
  1. GENOTROPIN [Suspect]
     Active Substance: SOMATROPIN
     Indication: Prader-Willi syndrome
     Route: 058
     Dates: start: 202401
  2. GENOTROPIN [Suspect]
     Active Substance: SOMATROPIN
     Indication: Growth hormone deficiency

REACTIONS (3)
  - Injection site pain [Unknown]
  - Injection site haemorrhage [Unknown]
  - Needle issue [Unknown]

NARRATIVE: CASE EVENT DATE: 20250101
